FAERS Safety Report 10067847 (Version 3)
Quarter: 2014Q2

REPORT INFORMATION
  Report Type: Spontaneous
  Country: US (occurrence: US)
  Receive Date: 20140409
  Receipt Date: 20140506
  Transmission Date: 20141212
  Serious: Yes (Hospitalization, Other)
  Sender: FDA-Public Use
  Company Number: US-INCYTE CORPORATION-2014IN000670

PATIENT
  Age: 67 Year
  Sex: Female

DRUGS (11)
  1. JAKAFI [Suspect]
     Indication: MYELOFIBROSIS
     Dosage: 20 MG, BID
     Route: 048
     Dates: start: 201401, end: 2014
  2. JAKAFI [Suspect]
     Indication: POLYCYTHAEMIA VERA
     Dosage: 10 MG, BID
     Route: 048
     Dates: start: 2014, end: 2014
  3. JAKAFI [Suspect]
     Dosage: 5 MG, BID
     Route: 048
     Dates: start: 2014
  4. AMITRIPTYLINE [Concomitant]
  5. PROPRANOLOL [Concomitant]
  6. PANTOPRAZOLE [Concomitant]
  7. TRAMADOL [Concomitant]
  8. SPIRONOLACTONE [Concomitant]
  9. METFORMIN [Concomitant]
  10. LASIX                              /00032601/ [Concomitant]
  11. ACETAMINOPHEN [Concomitant]

REACTIONS (7)
  - Fatigue [Unknown]
  - Transfusion reaction [Recovered/Resolved]
  - Dizziness [Unknown]
  - Convulsion [Unknown]
  - Anaemia [Recovered/Resolved]
  - Blister [Unknown]
  - Blood count abnormal [Not Recovered/Not Resolved]
